FAERS Safety Report 21770714 (Version 1)
Quarter: 2022Q4

REPORT INFORMATION
  Report Type: Spontaneous
  Country: ES (occurrence: None)
  Receive Date: 20221223
  Receipt Date: 20221223
  Transmission Date: 20230112
  Serious: Yes (Hospitalization, Other)
  Sender: FDA-Public Use
  Company Number: ES-Unichem Pharmaceuticals (USA) Inc-UCM202212-001350

PATIENT
  Age: 73 Year

DRUGS (10)
  1. QUETIAPINE [Suspect]
     Active Substance: QUETIAPINE
     Indication: Persistent depressive disorder
     Dosage: UNKNOWN
  2. DESVENLAFAXINE [Concomitant]
     Active Substance: DESVENLAFAXINE
     Indication: Persistent depressive disorder
     Dosage: UNKNOWN
  3. KETAZOLAM [Concomitant]
     Active Substance: KETAZOLAM
     Indication: Persistent depressive disorder
     Dosage: UNKNOWN
  4. LORAZEPAM [Concomitant]
     Active Substance: LORAZEPAM
     Indication: Persistent depressive disorder
     Dosage: UNKNOWN
  5. Enalapril/Hidroclorothiazide [Concomitant]
     Indication: Persistent depressive disorder
     Dosage: UNKNOWN
  6. OMEPRAZOLE [Concomitant]
     Active Substance: OMEPRAZOLE
     Indication: Persistent depressive disorder
     Dosage: UNKNOWN
  7. SIMVASTATIN [Concomitant]
     Active Substance: SIMVASTATIN
     Indication: Persistent depressive disorder
     Dosage: UNKNOWN
  8. ACETAMINOPHEN\TRAMADOL [Concomitant]
     Active Substance: ACETAMINOPHEN\TRAMADOL
     Indication: Persistent depressive disorder
     Dosage: UNKNOWN
  9. Alendronate/Colecalciferol [Concomitant]
     Indication: Persistent depressive disorder
     Dosage: UNKNOWN
  10. CALCIFEDIOL [Concomitant]
     Active Substance: CALCIFEDIOL
     Indication: Persistent depressive disorder
     Dosage: UNKNOWN

REACTIONS (2)
  - Colitis ischaemic [Recovered/Resolved]
  - Product use in unapproved indication [Unknown]
